FAERS Safety Report 9621784 (Version 3)
Quarter: 2017Q1

REPORT INFORMATION
  Report Type: Report from Study
  Country: GB (occurrence: GB)
  Receive Date: 20131015
  Receipt Date: 20170207
  Transmission Date: 20170429
  Serious: Yes (Hospitalization, Other)
  Sender: FDA-Public Use
  Company Number: GB-009507513-1310GBR006339

PATIENT
  Age: 53 Year
  Sex: Female
  Weight: 43.3 kg

DRUGS (5)
  1. ROSUVASTATIN CALCIUM. [Concomitant]
     Active Substance: ROSUVASTATIN CALCIUM
     Indication: HYPERCHOLESTEROLAEMIA
     Dosage: 5 MG, QD
     Route: 048
     Dates: end: 20130820
  2. ATRIPLA [Concomitant]
     Active Substance: EFAVIRENZ\EMTRICITABINE\TENOFOVIR DISOPROXIL FUMARATE
     Indication: HIV INFECTION
     Dosage: UNK
     Route: 048
     Dates: end: 20130820
  3. BISOPROLOL [Concomitant]
     Active Substance: BISOPROLOL
     Indication: ANGINA PECTORIS
     Dosage: 5 MG, QD
     Route: 048
     Dates: end: 20130820
  4. RIBAVIRIN. [Suspect]
     Active Substance: RIBAVIRIN
     Indication: CHRONIC HEPATITIS C
     Dosage: 800 MG, QD
     Route: 048
     Dates: start: 20130115, end: 20130820
  5. PEGINTERFERON ALFA-2A [Suspect]
     Active Substance: PEGINTERFERON ALFA-2A
     Indication: CHRONIC HEPATITIS C
     Dosage: 180 MICROGRAM, QW
     Route: 058
     Dates: start: 20130115, end: 20130813

REACTIONS (14)
  - Vertigo labyrinthine [Not Recovered/Not Resolved]
  - Weight decreased [Recovered/Resolved]
  - Subarachnoid haemorrhage [Recovered/Resolved]
  - Angioedema [Unknown]
  - Vomiting [Recovered/Resolved]
  - Cholecystitis [Recovered/Resolved]
  - Haemoglobin decreased [Recovered/Resolved]
  - Meningitis [Recovered/Resolved with Sequelae]
  - Insomnia [Recovered/Resolved]
  - Pneumonia [Recovered/Resolved]
  - Thrombocytopenia [Recovered/Resolved]
  - Nausea [Recovered/Resolved]
  - Hypoacusis [Not Recovered/Not Resolved]
  - Diarrhoea [Recovered/Resolved]

NARRATIVE: CASE EVENT DATE: 20130120
